FAERS Safety Report 5496623-1 (Version None)
Quarter: 2007Q4

REPORT INFORMATION
  Report Type: 
  Country: None (occurrence: None)
  Receive Date: 20071025
  Receipt Date: 20070626
  Transmission Date: 20080405
  Serious: No
  Sender: FDA-Public Use
  Company Number: A0660229A

PATIENT
  Age: 85 Year
  Sex: Male

DRUGS (11)
  1. ADVAIR DISKUS 100/50 [Suspect]
     Indication: ASTHMA
     Dosage: 1PUFF TWICE PER DAY
     Route: 055
  2. AMBIEN [Concomitant]
  3. ASPIRIN [Concomitant]
  4. ATROVENT [Concomitant]
  5. CELEBREX [Concomitant]
  6. DILTIA [Concomitant]
  7. NEXIUM [Concomitant]
  8. PRAVACHOL [Concomitant]
  9. PLAVIX [Concomitant]
  10. PROPOX N [Concomitant]
  11. UROXATRAL [Concomitant]

REACTIONS (3)
  - AGEUSIA [None]
  - ANOSMIA [None]
  - DECREASED APPETITE [None]
